FAERS Safety Report 24035620 (Version 1)
Quarter: 2024Q2

REPORT INFORMATION
  Report Type: Spontaneous
  Country: US (occurrence: None)
  Receive Date: 20240628
  Receipt Date: 20240628
  Transmission Date: 20240716
  Serious: Yes (Other)
  Sender: FDA-Public Use
  Company Number: None

PATIENT
  Age: 74 Year
  Sex: Female
  Weight: 72.57 kg

DRUGS (9)
  1. LEVOFLOXACIN [Suspect]
     Active Substance: LEVOFLOXACIN
     Indication: Pneumonia
     Dosage: 1 PILL  1 X / DAY BY MOUTH
     Route: 048
     Dates: start: 20240530, end: 20240603
  2. PREDNISONE [Suspect]
     Active Substance: PREDNISONE
  3. SYNTHROID [Concomitant]
  4. FLONASE [Concomitant]
     Active Substance: FLUTICASONE PROPIONATE
  5. ELIQUIS [Concomitant]
     Active Substance: APIXABAN
  6. ALENDRONATE [Concomitant]
     Active Substance: ALENDRONATE SODIUM
  7. CALCIUM CITRATE [Concomitant]
     Active Substance: CALCIUM CITRATE
  8. Coricedine HR [Concomitant]
  9. Musenex [Concomitant]

REACTIONS (6)
  - Pain in extremity [None]
  - Contusion [None]
  - Peripheral swelling [None]
  - Pain in extremity [None]
  - Arthropathy [None]
  - Pain in extremity [None]

NARRATIVE: CASE EVENT DATE: 20240601
